FAERS Safety Report 13170142 (Version 1)
Quarter: 2017Q1

REPORT INFORMATION
  Report Type: Spontaneous
  Country: IT (occurrence: IT)
  Receive Date: 20170131
  Receipt Date: 20170131
  Transmission Date: 20170428
  Serious: Yes (Hospitalization, Other)
  Sender: FDA-Public Use
  Company Number: IT-MYLANLABS-2017M1005147

PATIENT

DRUGS (2)
  1. CARMELLOSE SODIUM [Concomitant]
     Active Substance: CARBOXYMETHYLCELLULOSE SODIUM
     Indication: PARKINSON^S DISEASE
     Dosage: 2.95 % CARMELLOSE (CARBOXYMETHYLCELLULOSE; IN LEVODOPA/CARBIDOPA SUSPENSION)
  2. CARBIDOPA/LEVODOPA [Suspect]
     Active Substance: CARBIDOPA\LEVODOPA
     Indication: PARKINSON^S DISEASE
     Dosage: LEVODOPA (20MG/ML)/CARBIDOPA (5 MG/ML)

REACTIONS (3)
  - Duodenal ulcer [Recovering/Resolving]
  - Weight decreased [Unknown]
  - Decubitus ulcer [Recovering/Resolving]
